FAERS Safety Report 6820946-4 (Version None)
Quarter: 2010Q3

REPORT INFORMATION
  Report Type: 
  Country: None (occurrence: None)
  Receive Date: 20100707
  Receipt Date: 20071008
  Transmission Date: 20110219
  Serious: No
  Sender: FDA-Public Use
  Company Number: US-PFIZER INC-2007072358

PATIENT
  Age: 80 Year
  Sex: Female
  Weight: 72.57 kg

DRUGS (9)
  1. SERTRALINE [Suspect]
     Indication: DEPRESSION
     Dates: start: 20070601, end: 20070801
  2. HYDROCHLOROTHIAZIDE [Concomitant]
  3. VITAMINS [Concomitant]
  4. ATENOLOL [Concomitant]
  5. LOVASTATIN [Concomitant]
  6. CRANBERRY [Concomitant]
  7. CALCIUM CARBONATE [Concomitant]
  8. MAGNESIUM [Concomitant]
  9. ZOLOFT [Concomitant]

REACTIONS (4)
  - DEPRESSION [None]
  - DRUG INEFFECTIVE [None]
  - INCREASED APPETITE [None]
  - MEMORY IMPAIRMENT [None]
